FAERS Safety Report 23340380 (Version 1)
Quarter: 2023Q4

REPORT INFORMATION
  Report Type: Spontaneous
  Country: CH (occurrence: CH)
  Receive Date: 20231227
  Receipt Date: 20231227
  Transmission Date: 20240110
  Serious: Yes (Hospitalization)
  Sender: FDA-Public Use
  Company Number: None

PATIENT
  Age: 67 Year
  Sex: Male

DRUGS (22)
  1. OPDIVO [Suspect]
     Active Substance: NIVOLUMAB
     Indication: Adenocarcinoma gastric
     Route: 041
     Dates: start: 20220126, end: 20230814
  2. PACLITAXEL [Suspect]
     Active Substance: PACLITAXEL
     Indication: Adenocarcinoma gastric
     Route: 041
     Dates: start: 20230904
  3. PACLITAXEL [Suspect]
     Active Substance: PACLITAXEL
     Dosage: CYCLICAL
     Route: 041
     Dates: start: 20230911
  4. PACLITAXEL [Suspect]
     Active Substance: PACLITAXEL
     Route: 041
     Dates: end: 20230918
  5. PACLITAXEL [Suspect]
     Active Substance: PACLITAXEL
     Dosage: CYCLICAL
     Route: 041
     Dates: start: 20231010, end: 20231024
  6. CYRAMZA [Suspect]
     Active Substance: RAMUCIRUMAB
     Indication: Adenocarcinoma gastric
     Route: 041
     Dates: start: 20230918, end: 20230918
  7. CYRAMZA [Suspect]
     Active Substance: RAMUCIRUMAB
     Dosage: IN TOTAL
     Route: 041
     Dates: start: 20231010, end: 20231010
  8. CYRAMZA [Suspect]
     Active Substance: RAMUCIRUMAB
     Dosage: IN TOTAL
     Route: 041
     Dates: start: 20231024, end: 20231024
  9. DEXAMETHASONE [Concomitant]
     Active Substance: DEXAMETHASONE
     Indication: Chemotherapy side effect prophylaxis
     Dosage: CYCLICAL
     Route: 048
     Dates: start: 20230904, end: 20231024
  10. XYZAL [Concomitant]
     Active Substance: LEVOCETIRIZINE DIHYDROCHLORIDE
     Indication: Chemotherapy side effect prophylaxis
     Dosage: CYCLICAL
     Route: 048
     Dates: start: 20230904, end: 20231024
  11. PALONOSETRON [Concomitant]
     Active Substance: PALONOSETRON
     Indication: Chemotherapy side effect prophylaxis
     Dosage: CYCLICAL
     Route: 041
     Dates: start: 20230904, end: 20231024
  12. ASPIRIN [Concomitant]
     Active Substance: ASPIRIN
     Indication: Coronary artery disease
     Dosage: 1-0-0
     Route: 048
  13. CALCIUM CARBONATE\CHOLECALCIFEROL [Concomitant]
     Active Substance: CALCIUM CARBONATE\CHOLECALCIFEROL
     Indication: Osteoporosis prophylaxis
     Dosage: KALCIPOS D3 500 MG/800 IE 0-1-0-0
     Route: 048
  14. JARDIANCE [Concomitant]
     Active Substance: EMPAGLIFLOZIN
     Indication: Type 2 diabetes mellitus
     Dosage: 1-0-0-0
     Route: 048
  15. ALLOPURINOL [Concomitant]
     Active Substance: ALLOPURINOL
     Indication: Gouty arthritis
     Dosage: 1-0-0-0
     Route: 048
  16. CREON [Concomitant]
     Active Substance: PANCRELIPASE AMYLASE\PANCRELIPASE LIPASE\PANCRELIPASE PROTEASE
     Indication: Pancreatic failure
     Dosage: 1-1-1-0
     Route: 041
  17. CRESTOR [Concomitant]
     Active Substance: ROSUVASTATIN CALCIUM
     Indication: Hyperlipidaemia
     Dosage: 0-0-1-0,
     Dates: end: 20231031
  18. SUPRADYN [ASCORBIC ACID;BIOTIN;CYANOCOBALAMIN;ERGOCALCIFEROL;MINERALS [Concomitant]
     Route: 048
  19. BURGERSTEIN VITAMIN C [Concomitant]
     Indication: Product used for unknown indication
     Route: 048
  20. MAGNESIUM [Concomitant]
     Active Substance: MAGNESIUM
     Indication: Product used for unknown indication
     Route: 048
  21. HEPATODORON [Concomitant]
     Indication: Product used for unknown indication
     Route: 048
  22. VISCUM ALBUM FRUITING TOP [Concomitant]
     Active Substance: VISCUM ALBUM FRUITING TOP
     Indication: Product used for unknown indication
     Route: 058

REACTIONS (1)
  - Liver disorder [Not Recovered/Not Resolved]

NARRATIVE: CASE EVENT DATE: 20231031
